FAERS Safety Report 5724817-6 (Version None)
Quarter: 2008Q2

REPORT INFORMATION
  Report Type: 
  Country: None (occurrence: None)
  Receive Date: 20080501
  Receipt Date: 20080417
  Transmission Date: 20081010
  Serious: Yes (Hospitalization)
  Sender: FDA-Public Use
  Company Number: US-AMGEN-QUU273898

PATIENT
  Sex: Female
  Weight: 102.6 kg

DRUGS (4)
  1. ENBREL [Suspect]
     Indication: RHEUMATOID ARTHRITIS
     Route: 058
     Dates: start: 20061122
  2. METHOTREXATE [Concomitant]
     Dates: start: 20060901
  3. FOLIC ACID [Concomitant]
     Dates: start: 20060901
  4. CALCIUM WITH VITAMIN D [Concomitant]

REACTIONS (9)
  - AMNESIA [None]
  - CEREBRAL HAEMORRHAGE [None]
  - DIPLOPIA [None]
  - FALL [None]
  - HEADACHE [None]
  - INJECTION SITE ERYTHEMA [None]
  - SKIN LACERATION [None]
  - SUBARACHNOID HAEMORRHAGE [None]
  - WRIST FRACTURE [None]
